FAERS Safety Report 24645916 (Version 1)
Quarter: 2024Q4

REPORT INFORMATION
  Report Type: Report from Study
  Country: US (occurrence: US)
  Receive Date: 20241121
  Receipt Date: 20241121
  Transmission Date: 20250115
  Serious: Yes (Other)
  Sender: ALEXION PHARMACEUTICALS
  Company Number: US-AstraZeneca-CH-00747327A

PATIENT

DRUGS (4)
  1. EXENATIDE [Suspect]
     Active Substance: EXENATIDE
     Dosage: UNK
     Route: 065
  2. EXENATIDE [Suspect]
     Active Substance: EXENATIDE
     Dosage: UNK
  3. EXENATIDE [Suspect]
     Active Substance: EXENATIDE
     Dosage: UNK
     Route: 065
  4. EXENATIDE [Suspect]
     Active Substance: EXENATIDE
     Dosage: UNK

REACTIONS (1)
  - Blindness [Unknown]
